FAERS Safety Report 9053255 (Version 3)
Quarter: 2013Q2

REPORT INFORMATION
  Report Type: Report from Study
  Country: CA (occurrence: CA)
  Receive Date: 20130207
  Receipt Date: 20130521
  Transmission Date: 20140414
  Serious: Yes (Hospitalization, Other)
  Sender: FDA-Public Use
  Company Number: PHHY2013CA011446

PATIENT
  Age: 56 Year
  Sex: Female

DRUGS (8)
  1. TASIGNA [Suspect]
     Indication: CHRONIC MYELOID LEUKAEMIA
     Dosage: 300 MG, BID
     Route: 048
     Dates: start: 20111004, end: 20111019
  2. TASIGNA [Suspect]
     Dosage: 300 MG, BID
     Route: 048
     Dates: start: 20111115
  3. ASA [Concomitant]
     Route: 048
  4. PLAVIX [Concomitant]
     Dosage: 75 MG, QD
     Route: 048
  5. LEVOTHYROXIN [Concomitant]
     Dosage: 0.125 MG, QD
  6. METOPROLOL [Concomitant]
     Dosage: 50 MG, BID
     Route: 048
  7. ALTACE [Concomitant]
     Dosage: 5 MG, DAILY
     Route: 048
  8. CRESTOR [Concomitant]
     Dosage: 20 MG, DAILY
     Route: 048

REACTIONS (2)
  - Acute myocardial infarction [Recovered/Resolved]
  - Folliculitis [Not Recovered/Not Resolved]
